FAERS Safety Report 6928580-2 (Version None)
Quarter: 2010Q3

REPORT INFORMATION
  Report Type: 
  Country: None (occurrence: None)
  Receive Date: 20100817
  Receipt Date: 20100809
  Transmission Date: 20110219
  Serious: Yes (Other)
  Sender: FDA-Public Use
  Company Number: A0760185A

PATIENT
  Age: 81 Year
  Sex: Female

DRUGS (5)
  1. COREG [Suspect]
     Indication: HYPERTENSION
     Dosage: 12.5MG TWICE PER DAY
     Route: 048
     Dates: start: 20050801
  2. ADVAIR DISKUS 100/50 [Suspect]
     Indication: ASTHMA
     Dosage: 1PUFF THREE TIMES PER DAY
     Route: 055
     Dates: start: 20070701, end: 20081001
  3. LASIX [Concomitant]
  4. NEXIUM [Concomitant]
  5. POTASSIUM [Concomitant]

REACTIONS (6)
  - ALOPECIA [None]
  - CANDIDIASIS [None]
  - DRUG EFFECT DECREASED [None]
  - DYSGRAPHIA [None]
  - EPISTAXIS [None]
  - MENTAL IMPAIRMENT [None]
